FAERS Safety Report 4916722-X (Version None)
Quarter: 2006Q1

REPORT INFORMATION
  Report Type: 
  Country: None (occurrence: None)
  Receive Date: 20060214
  Receipt Date: 20060125
  Transmission Date: 20060701
  Serious: Yes (Hospitalization, Other)
  Sender: FDA-Public Use
  Company Number: JP200601004625

PATIENT
  Age: 34 Year
  Sex: Female

DRUGS (2)
  1. HUMALOG [Suspect]
     Indication: DIABETES MELLITUS
     Dosage: 14 U, DAILY (1/D) ,  1200 U, DAILY (1/D) , SUBCUTANEOUS
     Route: 058
     Dates: end: 20051103
  2. HUMALOG [Suspect]
     Indication: DIABETES MELLITUS
     Dosage: 14 U, DAILY (1/D) ,  1200 U, DAILY (1/D) , SUBCUTANEOUS
     Route: 058
     Dates: start: 20051104, end: 20051104

REACTIONS (4)
  - HYPERGLYCAEMIA [None]
  - HYPOGLYCAEMIC COMA [None]
  - INTENTIONAL OVERDOSE [None]
  - SUICIDE ATTEMPT [None]
